FAERS Safety Report 6733323-1 (Version None)
Quarter: 2010Q2

REPORT INFORMATION
  Report Type: 
  Country: None (occurrence: None)
  Receive Date: 20100520
  Receipt Date: 20100507
  Transmission Date: 20101027
  Serious: Yes (Other)
  Sender: FDA-Public Use
  Company Number: US-PFIZER INC-2009308957

PATIENT
  Sex: Female
  Weight: 97.068 kg

DRUGS (14)
  1. LYRICA [Suspect]
     Indication: INTERVERTEBRAL DISC DISORDER
     Dosage: 50 MG, 2X/DAY
     Dates: start: 20091202, end: 20091208
  2. BENICAR HCT [Concomitant]
  3. CRESTOR [Concomitant]
  4. FUROSEMIDE [Concomitant]
  5. ADVAIR DISKUS 100/50 [Concomitant]
  6. ALLOPURINOL [Concomitant]
  7. XOPENEX [Concomitant]
  8. PRILOSEC [Concomitant]
  9. FOLIC ACID [Concomitant]
  10. PROCRIT [Concomitant]
  11. VITAMIN B-12 [Concomitant]
     Route: 051
  12. AMBIEN [Concomitant]
  13. ACETYLSALICYLIC ACID [Concomitant]
  14. CALCIUM [Concomitant]

REACTIONS (5)
  - BLOOD CREATININE INCREASED [None]
  - BLOOD UREA INCREASED [None]
  - OEDEMA [None]
  - OEDEMA PERIPHERAL [None]
  - WEIGHT INCREASED [None]
